FAERS Safety Report 6356645-5 (Version None)
Quarter: 2009Q3

REPORT INFORMATION
  Report Type: 
  Country: None (occurrence: None)
  Receive Date: 20090914
  Receipt Date: 20090914
  Transmission Date: 20100115
  Serious: Yes (Hospitalization)
  Sender: FDA-Public Use
  Company Number: None

PATIENT
  Age: 38 Year
  Sex: Male
  Weight: 127 kg

DRUGS (2)
  1. VECURONIUM BROMIDE [Suspect]
     Indication: ANAESTHESIA
     Dates: start: 20090729, end: 20090729
  2. PROPOFOL [Suspect]
     Indication: ANAESTHESIA
     Dates: start: 20090729, end: 20090729

REACTIONS (4)
  - ANAPHYLACTIC REACTION [None]
  - BRONCHOSPASM [None]
  - HYPOTENSION [None]
  - LUNG DISORDER [None]
